FAERS Safety Report 21250255 (Version 2)
Quarter: 2022Q3

REPORT INFORMATION
  Report Type: Spontaneous
  Country: US (occurrence: US)
  Receive Date: 20220824
  Receipt Date: 20220830
  Transmission Date: 20221027
  Serious: Yes (Other)
  Sender: FDA-Public Use
  Company Number: US-JAZZ-2022-US-027530

PATIENT
  Age: 69 Year
  Sex: Female
  Weight: 89.796 kg

DRUGS (2)
  1. XYREM [Suspect]
     Active Substance: SODIUM OXYBATE
     Indication: Product used for unknown indication
     Dosage: STARTED IN 2003, TOOK ON-AND-OFF UNTIL DISCONTINUED IN 2019
     Route: 048
     Dates: start: 2003, end: 2019
  2. CARVEDILOL [Concomitant]
     Active Substance: CARVEDILOL
     Indication: Blood pressure increased
     Dosage: UNK

REACTIONS (5)
  - Oophorectomy [Not Recovered/Not Resolved]
  - Papillary thyroid cancer [Recovered/Resolved]
  - Plasma cell myeloma [Recovered/Resolved]
  - Glomerular filtration rate abnormal [Recovering/Resolving]
  - Blood pressure increased [Unknown]

NARRATIVE: CASE EVENT DATE: 20190101
